FAERS Safety Report 4701698-0 (Version None)
Quarter: 2005Q2

REPORT INFORMATION
  Report Type: 
  Country: None (occurrence: None)
  Receive Date: 20050628
  Receipt Date: 19970813
  Transmission Date: 20051028
  Serious: Yes (Other)
  Sender: FDA-Public Use
  Company Number: PHHO1997BR04105

PATIENT
  Age: 59 Year
  Sex: Female
  Weight: 60 kg

DRUGS (4)
  1. NPH INSULIN [Concomitant]
  2. IMIPRAMINE [Concomitant]
  3. DIAZEPAM [Concomitant]
  4. DIOVAN [Suspect]
     Indication: HYPERTENSION
     Dosage: 80 MG/DAY
     Dates: start: 19970717

REACTIONS (2)
  - HYPERTENSIVE CRISIS [None]
  - URINARY TRACT INFECTION [None]
